FAERS Safety Report 23123434 (Version 1)
Quarter: 2023Q4

REPORT INFORMATION
  Report Type: Spontaneous
  Country: FR (occurrence: FR)
  Receive Date: 20231030
  Receipt Date: 20231030
  Transmission Date: 20240110
  Serious: Yes (Hospitalization)
  Sender: FDA-Public Use
  Company Number: None

PATIENT
  Age: 34 Year
  Sex: Male
  Weight: 84 kg

DRUGS (1)
  1. SKYRIZI [Suspect]
     Active Substance: RISANKIZUMAB-RZAA
     Indication: Psoriasis
     Dosage: TIME INTERVAL: 1 TOTAL: 150 MG
     Route: 058
     Dates: start: 20230901, end: 202309

REACTIONS (2)
  - Meningoradiculitis [Recovering/Resolving]
  - Meningitis aseptic [Recovering/Resolving]

NARRATIVE: CASE EVENT DATE: 20230925
